FAERS Safety Report 6081037-6 (Version None)
Quarter: 2009Q1

REPORT INFORMATION
  Report Type: 
  Country: None (occurrence: None)
  Receive Date: 20090217
  Receipt Date: 20090209
  Transmission Date: 20090719
  Serious: Yes (Other)
  Sender: FDA-Public Use
  Company Number: PHEH2006US09222

PATIENT
  Sex: Male

DRUGS (1)
  1. ZOMETA [Suspect]
     Indication: METASTASES TO BONE
     Dosage: ONCE PER MONTH
     Dates: start: 20041001, end: 20051101

REACTIONS (13)
  - ANXIETY [None]
  - BONE DEBRIDEMENT [None]
  - BONE DISORDER [None]
  - INFECTION [None]
  - INJURY [None]
  - MASTICATION DISORDER [None]
  - ORAL DISORDER [None]
  - ORAL PAIN [None]
  - OSTEONECROSIS [None]
  - PAIN [None]
  - RESORPTION BONE INCREASED [None]
  - STOMATITIS [None]
  - SWELLING [None]
